FAERS Safety Report 9645159 (Version 2)
Quarter: 2013Q4

REPORT INFORMATION
  Report Type: Spontaneous
  Country: US (occurrence: US)
  Receive Date: 20131025
  Receipt Date: 20131025
  Transmission Date: 20140711
  Serious: Yes (Other)
  Sender: FDA-Public Use
  Company Number: US-PFIZER INC-2013176550

PATIENT
  Age: 49 Year
  Sex: Female

DRUGS (5)
  1. NEURONTIN [Suspect]
     Dosage: UNK
  2. EFFEXOR XR [Suspect]
     Dosage: UNK
  3. SEROQUEL [Concomitant]
     Dosage: UNK
  4. VALIUM [Concomitant]
     Dosage: UNK
  5. ADVAIR [Concomitant]
     Dosage: UNK

REACTIONS (1)
  - Breast mass [Unknown]
